FAERS Safety Report 14555111 (Version 2)
Quarter: 2018Q1

REPORT INFORMATION
  Report Type: Spontaneous
  Country: FR (occurrence: FR)
  Receive Date: 20180220
  Receipt Date: 20180228
  Transmission Date: 20180509
  Serious: Yes (Hospitalization, Other)
  Sender: FDA-Public Use
  Company Number: PHHY2018FR027662

PATIENT
  Age: 56 Year
  Sex: Male

DRUGS (2)
  1. VOLTARENE (DICLOFENAC SODIUM) [Suspect]
     Active Substance: DICLOFENAC SODIUM
     Indication: ANKYLOSING SPONDYLITIS
     Dosage: 1 DF, QD (IN THE EVENING)
     Route: 065
     Dates: end: 2016
  2. VOLTARENE (DICLOFENAC SODIUM) [Suspect]
     Active Substance: DICLOFENAC SODIUM
     Indication: NEUROPATHY PERIPHERAL

REACTIONS (5)
  - Erectile dysfunction [Not Recovered/Not Resolved]
  - Anal fistula [Recovered/Resolved]
  - Diverticulitis [Unknown]
  - Peritonitis [Unknown]
  - General physical health deterioration [Not Recovered/Not Resolved]

NARRATIVE: CASE EVENT DATE: 2016
